FAERS Safety Report 8847982 (Version 1)
Quarter: 2012Q4

REPORT INFORMATION
  Report Type: Report from Study
  Country: FR (occurrence: FR)
  Receive Date: 20121018
  Receipt Date: 20121018
  Transmission Date: 20130627
  Serious: Yes (Hospitalization)
  Sender: FDA-Public Use
  Company Number: FR-CELGENEUS-056-50794-12101108

PATIENT
  Age: 76 Year
  Sex: Male

DRUGS (2)
  1. VIDAZA [Suspect]
     Indication: MDS
     Route: 065
     Dates: start: 20120910, end: 20120918
  2. DEPAKIN [Concomitant]
     Indication: MYELODYSPLASTIC SYNDROME
     Route: 065

REACTIONS (1)
  - Supraventricular tachycardia [Not Recovered/Not Resolved]
